FAERS Safety Report 7943327-9 (Version None)
Quarter: 2011Q4

REPORT INFORMATION
  Report Type: 
  Country: None (occurrence: None)
  Receive Date: 20111128
  Receipt Date: 20111122
  Transmission Date: 20120403
  Serious: Yes (Death, Hospitalization, Other)
  Sender: FDA-Public Use
  Company Number: PHEH2006US10970

PATIENT
  Sex: Female
  Weight: 86.168 kg

DRUGS (82)
  1. CHEMOTHERAPEUTICS NOS [Concomitant]
  2. MORPHINE SULFATE [Concomitant]
     Dosage: 0.5 ML, TAKE 0.5 ML (10 MG) EVERY 4 HRS AS NEEDED
     Route: 048
     Dates: start: 20100222
  3. LORAZEPAM [Concomitant]
     Dosage: 2 MG, Q6H
     Route: 048
     Dates: start: 20090416
  4. MS CONTIN [Concomitant]
     Indication: PAIN
     Dosage: 60 UKN, BID (UNITS NOT SPECIFIED)
  5. MITOMYCIN-C + 5-FU [Concomitant]
  6. ZOCOR [Concomitant]
     Dosage: 20 MG, DAILY
  7. ULTRAM [Concomitant]
  8. COSOPT [Concomitant]
  9. WELLBUTRIN [Concomitant]
     Dosage: 150 MG, QD
     Dates: end: 20100920
  10. DIGESTIVE ENZYMES [Concomitant]
  11. MULTI-VITAMINS [Concomitant]
  12. METHYLPREDNISOLONE [Concomitant]
     Dosage: 4 MG, AS DIRECTED
     Route: 048
     Dates: start: 20100324
  13. DARVON [Concomitant]
  14. ECONOPRED [Concomitant]
     Dosage: 1 DF, 1 DROP THRICE DAILY TO THE RIGHT EYE
  15. LODINE [Concomitant]
     Dosage: 400 MG, BID
  16. CLARITIN [Concomitant]
  17. THYROID HORMONES [Concomitant]
     Dosage: 60 MG, QD
     Route: 048
  18. BEXTRA [Concomitant]
  19. MORPHINE SULFATE [Concomitant]
     Dosage: 300 MG, BID
  20. MIRALAX [Concomitant]
     Dosage: 17 G, BID
  21. FLUOXETINE HCL [Concomitant]
     Dosage: 2 DF, EVERY DAY IN THE MORNING
     Route: 048
     Dates: start: 20100204
  22. FLUCONAZOLE [Concomitant]
     Dosage: 150 MG, FOR EVERY 3 DAYS
     Route: 048
     Dates: start: 20091106
  23. INSULIN [Concomitant]
  24. MUCINEX DM [Concomitant]
     Dosage: 600 MG, BID
     Route: 048
  25. LETROZOLE [Concomitant]
  26. EXEMESTANE [Concomitant]
     Dosage: 25 MG, QD
  27. GABAPENTIN [Concomitant]
     Indication: PAIN
  28. ACETAMINOPHEN W/ PROPOXYPHENE HCL [Concomitant]
     Indication: PAIN
     Dosage: 1 DF, 100 - 650 MG, 1 TABLET EVERY 4 - 6 HRS AS NEEDED
     Route: 048
     Dates: start: 20091102
  29. SENOKOT [Concomitant]
     Indication: CONSTIPATION
  30. SHARK-LIVER OIL [Concomitant]
  31. FASLODEX [Concomitant]
     Dates: start: 20070806
  32. AROMASIN [Concomitant]
  33. LYRICA [Concomitant]
  34. PROLEX D [Concomitant]
  35. DIFLUCAN [Concomitant]
  36. SCOPOLAMINE [Concomitant]
  37. LASIX [Concomitant]
     Dosage: 20 MG, QD
  38. ESOMEPRAZOLE MAGNESIUM [Concomitant]
     Dosage: 40 MG, BEFORE BREAKFAST
     Route: 048
     Dates: start: 20090416
  39. PRED FORTE [Concomitant]
  40. ZOMETA [Suspect]
     Dosage: 4 MG, QW4
     Dates: start: 20050203
  41. FEMARA [Concomitant]
     Dosage: 2.5 MG, QD
     Route: 048
  42. DEXAMETHASONE [Concomitant]
     Dosage: 10 MG, Q4W
     Route: 042
     Dates: start: 20031105
  43. COENZYME Q10 [Concomitant]
  44. CELEBREX [Concomitant]
     Dosage: 200 MG, QD
  45. RISEDRONATE SODIUM [Concomitant]
     Dosage: 35 MG, QW
     Route: 048
  46. ERGOCALCIFEROL [Concomitant]
     Dosage: 1 DF, QW
     Route: 048
     Dates: start: 20100506
  47. MORPHINE SULFATE [Concomitant]
  48. CIPROFLOXACIN [Concomitant]
     Dosage: 500 MG, BID
     Route: 048
  49. ASTELIN [Concomitant]
  50. LEVAQUIN [Concomitant]
     Dosage: 750 MG, DAILY
  51. FISH OIL [Concomitant]
  52. MINERAL TAB [Concomitant]
  53. ZITHROMAX [Concomitant]
  54. AVELOX [Concomitant]
  55. HYDROMORPHONE HCL [Concomitant]
     Dosage: 1 DF, EVERY 4 - 6 HOURS AS NEEDED
     Route: 048
     Dates: start: 20100514
  56. FERROUS FUMARATE [Concomitant]
     Dosage: 1 DF, DAILY
     Route: 048
     Dates: start: 20091022
  57. UBIDECARENONE [Concomitant]
     Dosage: 2 DF, DAILY
     Dates: start: 20090807
  58. PROMETHAZINE HCL [Concomitant]
     Dosage: 25 MG, Q6H
     Route: 048
     Dates: start: 20090416
  59. COLACE [Concomitant]
     Indication: CONSTIPATION
     Dosage: UNK UKN, AT NIGHT
  60. ATIVAN [Concomitant]
  61. DARVOCET-N 50 [Concomitant]
     Dosage: 1 DF, Q6H, 100-650 MG, ONE TABLET EVERY 6 HRS
     Route: 048
  62. OMNICEF [Concomitant]
  63. PENLAC [Concomitant]
  64. ESTRACE [Concomitant]
  65. ANTIVERT ^PFIZER^ [Concomitant]
  66. VITAMIN D [Concomitant]
  67. MORPHINE SULFATE [Concomitant]
     Dosage: 80 MG, QD
  68. NEURONTIN [Concomitant]
     Dosage: 300 MG, BID
     Route: 048
  69. AREDIA [Suspect]
     Dosage: 90 MG, Q4W
     Route: 042
     Dates: start: 20031105, end: 20050105
  70. GARLIC [Concomitant]
  71. SELENIUM [Concomitant]
  72. MECLIZINE [Concomitant]
  73. PROPOXYPHENE HCL AND ACETAMINOPHEN [Concomitant]
     Indication: PAIN
     Dosage: 1 DF, 65-650 MG, 1 TABLET EVERY 4 HRS AS NEEDED
     Route: 048
     Dates: start: 20091026, end: 20100412
  74. MORPHINE SULFATE [Concomitant]
     Dosage: 0.5 ML, TAKE 0.5 ML (10 MG) EVERY 4 HRS AS NEEDED
     Route: 048
     Dates: start: 20100409
  75. ONDASETRON [Concomitant]
     Indication: NAUSEA
     Dosage: 4 MG, Q8H
     Dates: start: 20090416
  76. ACETAMINOPHEN W/ PROPOXYPHENE HCL [Concomitant]
     Dosage: 1 DF, 100 - 650 MG, 1 TABLET EVERY 4 - 6 HRS AS NEEDED
     Route: 048
     Dates: start: 20100514
  77. TOPROL-XL [Concomitant]
     Dosage: 1 DF, DAILY
     Route: 048
  78. AMBIEN [Concomitant]
  79. HUMIBID [Concomitant]
  80. SKELAXIN [Concomitant]
  81. ALPHAGAN [Concomitant]
  82. DECADRON [Concomitant]

REACTIONS (84)
  - OSTEONECROSIS OF JAW [None]
  - GENERAL PHYSICAL HEALTH DETERIORATION [None]
  - SYNCOPE [None]
  - FACIAL PAIN [None]
  - IRIS ADHESIONS [None]
  - EYE IRRITATION [None]
  - HYPERTHERMIA [None]
  - OSTEOPENIA [None]
  - FACE OEDEMA [None]
  - PAIN IN JAW [None]
  - RASH [None]
  - HIP FRACTURE [None]
  - PAIN [None]
  - EXCORIATION [None]
  - FALL [None]
  - ANXIETY [None]
  - GLOSSITIS [None]
  - BONE DISORDER [None]
  - LOSS OF CONSCIOUSNESS [None]
  - ARTHRALGIA [None]
  - CHOLELITHIASIS [None]
  - BACK DISORDER [None]
  - ATROPHIC VULVOVAGINITIS [None]
  - BLINDNESS [None]
  - BENIGN NEOPLASM OF ADRENAL GLAND [None]
  - HALLUCINATION [None]
  - VERTIGO [None]
  - PAIN IN EXTREMITY [None]
  - ABDOMINAL DISTENSION [None]
  - AMAUROSIS FUGAX [None]
  - CATARACT [None]
  - VISUAL IMPAIRMENT [None]
  - HEPATIC STEATOSIS [None]
  - MACULAR DEGENERATION [None]
  - DEATH [None]
  - BACK PAIN [None]
  - MOUTH ULCERATION [None]
  - HYPOAESTHESIA ORAL [None]
  - PALPITATIONS [None]
  - CHROMATURIA [None]
  - SINUSITIS [None]
  - HEADACHE [None]
  - NASAL CONGESTION [None]
  - DEVICE RELATED INFECTION [None]
  - DELUSION [None]
  - TONGUE ULCERATION [None]
  - METASTASES TO BONE [None]
  - FATIGUE [None]
  - NOCTURIA [None]
  - DRY EYE [None]
  - BRUXISM [None]
  - DYSPNOEA [None]
  - GASTRITIS [None]
  - MACULAR HOLE [None]
  - METASTASES TO LIVER [None]
  - SWOLLEN TONGUE [None]
  - DRY MOUTH [None]
  - DYSURIA [None]
  - BONE PAIN [None]
  - LYMPHADENOPATHY [None]
  - ASTHENIA [None]
  - CENTRAL NERVOUS SYSTEM LESION [None]
  - BRONCHITIS [None]
  - HYPOTENSION [None]
  - HEPATIC LESION [None]
  - ASPIRATION [None]
  - DECREASED INTEREST [None]
  - TOOTHACHE [None]
  - DIZZINESS [None]
  - HYPERHIDROSIS [None]
  - INFLUENZA LIKE ILLNESS [None]
  - POLLAKIURIA [None]
  - MYALGIA [None]
  - NAUSEA [None]
  - CONSTIPATION [None]
  - INTRAOCULAR PRESSURE INCREASED [None]
  - COUGH [None]
  - DIPLOPIA [None]
  - ASCITES [None]
  - PHYSICAL DISABILITY [None]
  - MACULAR CYST [None]
  - PATHOLOGICAL FRACTURE [None]
  - CONFUSIONAL STATE [None]
  - DYSPHAGIA [None]
